FAERS Safety Report 4535705-5 (Version None)
Quarter: 2004Q4

REPORT INFORMATION
  Report Type: 
  Country: None (occurrence: None)
  Receive Date: 20041223
  Receipt Date: 20031212
  Transmission Date: 20050328
  Serious: No
  Sender: FDA-Public Use
  Company Number: US-GLAXOSMITHKLINE-A0442987A

PATIENT
  Age: 56 Year
  Sex: Female

DRUGS (2)
  1. FLONASE [Suspect]
     Route: 045
  2. NASAL SPRAY [Suspect]
     Route: 045

REACTIONS (4)
  - DRUG INEFFECTIVE [None]
  - HEADACHE [None]
  - NASAL DISCOMFORT [None]
  - SENSORY DISTURBANCE [None]
